FAERS Safety Report 18341282 (Version 1)
Quarter: 2020Q4

REPORT INFORMATION
  Report Type: Report from Study
  Country: DE (occurrence: DE)
  Receive Date: 20201003
  Receipt Date: 20201003
  Transmission Date: 20210113
  Serious: Yes (Other)
  Sender: FDA-Public Use
  Company Number: DE-TEVA-2020-DE-1834296

PATIENT
  Age: 32 Year
  Sex: Female

DRUGS (3)
  1. LAMOTRIGINE. [Concomitant]
     Active Substance: LAMOTRIGINE
     Indication: PRODUCT USED FOR UNKNOWN INDICATION
     Dosage: 150 MG ,DAILY DOSE FREQ.: DAILY
     Route: 065
     Dates: start: 19991118
  2. VALPROIC ACID. [Concomitant]
     Active Substance: VALPROIC ACID
     Indication: PRODUCT USED FOR UNKNOWN INDICATION
     Dosage: 1300 MG ,DAILY DOSE FREQ.: DAILY
     Dates: start: 1992
  3. LEVETIRACETAM. [Suspect]
     Active Substance: LEVETIRACETAM
     Indication: PRODUCT USED FOR UNKNOWN INDICATION
     Dosage: 2000 M G ,DAILY DOSE FREQ.: DAILY
     Dates: start: 20020331

REACTIONS (3)
  - Maternal exposure before pregnancy [Unknown]
  - Hypothyroidism [Unknown]
  - Migraine [Unknown]

NARRATIVE: CASE EVENT DATE: 200508
